FAERS Safety Report 8907571 (Version 1)
Quarter: 2012Q4

REPORT INFORMATION
  Report Type: 
  Country: US (occurrence: US)
  Receive Date: 20121114
  Receipt Date: 20121114
  Transmission Date: 20130627
  Serious: Yes (Other)
  Sender: FDA-Public Use
  Company Number: US-ASTELLAS-2012US010917

PATIENT
  Age: 78 Year
  Sex: Male

DRUGS (2)
  1. PROGRAF [Suspect]
     Indication: RENAL FAILURE
     Dosage: 4 mg morning, 3 mg evening
     Route: 048
     Dates: start: 20100604
  2. PROGRAF [Suspect]
     Indication: RENAL TRANSPLANT

REACTIONS (4)
  - Off label use [Unknown]
  - Adverse event [Unknown]
  - Stent placement [Unknown]
  - Cellulitis of male external genital organ [Unknown]
